FAERS Safety Report 20127279 (Version 1)
Quarter: 2021Q4

REPORT INFORMATION
  Report Type: Spontaneous
  Country: US (occurrence: None)
  Receive Date: 20211126
  Receipt Date: 20211126
  Transmission Date: 20220303
  Serious: No
  Sender: FDA-Public Use
  Company Number: None

PATIENT

DRUGS (2)
  1. LANTUS [Suspect]
     Active Substance: INSULIN GLARGINE
  2. HUMALOG PEN [Suspect]
     Active Substance: INSULIN LISPRO

REACTIONS (3)
  - Wrong product administered [None]
  - Product use complaint [None]
  - Product label confusion [None]
